FAERS Safety Report 25847816 (Version 1)
Quarter: 2025Q3

REPORT INFORMATION
  Report Type: Spontaneous
  Country: US (occurrence: None)
  Receive Date: 20250925
  Receipt Date: 20250925
  Transmission Date: 20251020
  Serious: Yes (Other)
  Sender: FDA-CTU
  Company Number: None

PATIENT
  Sex: Female

DRUGS (11)
  1. BOTOX [Suspect]
     Active Substance: ONABOTULINUMTOXINA
     Indication: Migraine
     Route: 050
     Dates: start: 20240627
  2. ALBUTEROL AER HFA [Concomitant]
  3. ALPRAZOLAM TAB 0.5MG [Concomitant]
  4. AZITHROMYCIN [Concomitant]
     Active Substance: AZITHROMYCIN
  5. BROM/PSE/DM SYP 2/30/10 [Concomitant]
  6. FLUOXETINE CAP 20MG [Concomitant]
  7. GABAPENTIN [Concomitant]
     Active Substance: GABAPENTIN
  8. LAMOTRIGINE [Concomitant]
     Active Substance: LAMOTRIGINE
  9. LAMOTRIGINE TAB 25MG [Concomitant]
  10. LEVOTHYROXIN TAB 50MCG [Concomitant]
  11. LIOTHYRONI NE TAB 5MCG [Concomitant]

REACTIONS (1)
  - Neoplasm malignant [None]
